FAERS Safety Report 5597669-5 (Version None)
Quarter: 2008Q1

REPORT INFORMATION
  Report Type: 
  Country: None (occurrence: None)
  Receive Date: 20080121
  Receipt Date: 20080109
  Transmission Date: 20080703
  Serious: Yes (Life-Threatening, Hospitalization)
  Sender: FDA-Public Use
  Company Number: SE-WYE-H02194708

PATIENT
  Sex: Male

DRUGS (11)
  1. CORDARONE [Suspect]
     Indication: ATRIAL FIBRILLATION
     Route: 048
     Dates: start: 20070824, end: 20070824
  2. CORDARONE [Suspect]
     Route: 048
     Dates: start: 20070825, end: 20070825
  3. ENALAPRIL MALEATE [Concomitant]
     Dosage: UNSPECIFIED
     Route: 048
  4. PROPAVAN [Concomitant]
     Dosage: UNSPECIFIED
     Route: 048
  5. METOPROLOL TARTRATE [Concomitant]
     Dosage: UNSPECIFIED
     Route: 048
  6. PRIMPERAN INJ [Concomitant]
     Dosage: UNSPECIFIED
     Route: 042
  7. SPIRONOLACTONE [Concomitant]
     Dosage: UNSPECIFIED
     Route: 048
  8. OXASCAND [Concomitant]
     Dosage: UNSPECIFIED
     Route: 048
  9. ZOPICLONE [Concomitant]
  10. CORDARONE [Suspect]
     Dosage: 12 MG OF AMIODARONE INFUSION 50 MG/ML
     Route: 042
     Dates: start: 20070825, end: 20070825
  11. COCILLANA-ETYFIN [Concomitant]
     Dosage: UNSPECIFIED
     Route: 048

REACTIONS (4)
  - CARDIAC FAILURE [None]
  - CONDITION AGGRAVATED [None]
  - HEPATIC FAILURE [None]
  - RENAL FAILURE [None]
